FAERS Safety Report 4940500-9 (Version None)
Quarter: 2006Q1

REPORT INFORMATION
  Report Type: 
  Country: None (occurrence: None)
  Receive Date: 20060131
  Receipt Date: 20051018
  Transmission Date: 20060701
  Serious: Yes (Other)
  Sender: FDA-Public Use
  Company Number: 200518014US

PATIENT
  Age: 72 Year
  Sex: Male

DRUGS (5)
  1. KETEK [Suspect]
     Indication: RESPIRATORY TRACT INFECTION
     Dosage: 800 MG QD PO
     Route: 048
     Dates: start: 20051011, end: 20051012
  2. RAMIPRIL [Concomitant]
  3. ASPIRIN [Concomitant]
  4. LIPITOR [Concomitant]
  5. PRILOSEC [Concomitant]

REACTIONS (1)
  - ANGIONEUROTIC OEDEMA [None]
